FAERS Safety Report 23990387 (Version 1)
Quarter: 2024Q2

REPORT INFORMATION
  Report Type: Spontaneous
  Country: DE (occurrence: DE)
  Receive Date: 20240619
  Receipt Date: 20240619
  Transmission Date: 20240715
  Serious: Yes (Hospitalization, Other)
  Sender: FDA-Public Use
  Company Number: DE-BRISTOL-MYERS SQUIBB COMPANY-2024-095968

PATIENT
  Age: 74 Year

DRUGS (1)
  1. NIVOLUMAB [Suspect]
     Active Substance: NIVOLUMAB
     Indication: Malignant melanoma
     Dosage: DOSE : NIVOLUMAB 480 MG Q4W;     FREQ : NIVOLUMAB 480 MG Q4W
     Dates: start: 202101, end: 202112

REACTIONS (2)
  - Pemphigoid [Unknown]
  - Bullous erysipelas [Unknown]

NARRATIVE: CASE EVENT DATE: 20211001
